FAERS Safety Report 7210476-2 (Version None)
Quarter: 2011Q1

REPORT INFORMATION
  Report Type: 
  Country: None (occurrence: None)
  Receive Date: 20110105
  Receipt Date: 20101229
  Transmission Date: 20110831
  Serious: Yes (Other)
  Sender: FDA-Public Use
  Company Number: BR-ABBOTT-10P-020-0677179-00

PATIENT
  Sex: Female
  Weight: 55 kg

DRUGS (3)
  1. CRESTOR [Concomitant]
     Indication: BLOOD CHOLESTEROL INCREASED
     Route: 048
  2. HUMIRA [Suspect]
     Indication: RHEUMATOID ARTHRITIS
     Route: 058
  3. CALCIUM [Concomitant]
     Indication: BONE DISORDER
     Route: 048

REACTIONS (2)
  - FOOT DEFORMITY [None]
  - DEVICE FAILURE [None]
